FAERS Safety Report 10083684 (Version 1)
Quarter: 2014Q2

REPORT INFORMATION
  Report Type: Spontaneous
  Country: US (occurrence: US)
  Receive Date: 20140417
  Receipt Date: 20140417
  Transmission Date: 20141212
  Serious: No
  Sender: FDA-Public Use
  Company Number: US-PFIZER INC-2014106764

PATIENT
  Age: 50 Year
  Sex: Female

DRUGS (8)
  1. XANAX [Suspect]
     Dosage: UNK
  2. PROCARDIA [Suspect]
     Dosage: UNK
  3. PLAVIX [Suspect]
     Dosage: UNK
  4. LISINOPRIL [Suspect]
     Dosage: UNK
  5. LOPRESSOR [Suspect]
     Dosage: UNK
  6. CELEXA [Suspect]
     Dosage: UNK
  7. IMDUR [Suspect]
     Dosage: UNK
  8. PROVENTIL [Suspect]
     Dosage: UNK

REACTIONS (1)
  - Drug hypersensitivity [Unknown]
